FAERS Safety Report 23635701 (Version 1)
Quarter: 2024Q1

REPORT INFORMATION
  Report Type: Spontaneous
  Country: FR (occurrence: FR)
  Receive Date: 20240315
  Receipt Date: 20240315
  Transmission Date: 20240410
  Serious: Yes (Other)
  Sender: FDA-Public Use
  Company Number: None

PATIENT
  Age: 70 Year
  Sex: Female
  Weight: 44.3 kg

DRUGS (6)
  1. GEMCITABINE [Suspect]
     Active Substance: GEMCITABINE
     Indication: Cholangiocarcinoma
     Dosage: 100 MG/ML, CONCENTRATE FOR SOLUTION FOR INFUSION, 2ND CYCLE
     Dates: start: 20231122, end: 20231122
  2. OXALIPLATIN [Suspect]
     Active Substance: OXALIPLATIN
     Indication: Cholangiocarcinoma
     Dosage: 5 MG/ML, CONCENTRATE FOR SOLUTION FOR INFUSION, 2ND CYCLE
     Dates: start: 20231122, end: 20231122
  3. AMOXICILLIN\CLAVULANIC ACID [Suspect]
     Active Substance: AMOXICILLIN\CLAVULANIC ACID
     Indication: Urinary tract infection
     Dosage: 1 G/125 MG ADULTS, POWDER FOR ORAL?SOLUTION IN SACHET-DOSE (AMOXICILLIN/AC RATIO
     Dates: start: 20231103, end: 20231113
  4. DURVALUMAB [Suspect]
     Active Substance: DURVALUMAB
     Indication: Cholangiocarcinoma
     Dosage: SOLUTION, 50 MG/ML, INTRAVENOUS INFUSION,2ND CYCLE
     Dates: start: 20231122, end: 20231122
  5. NIRMATRELVIR\RITONAVIR [Suspect]
     Active Substance: NIRMATRELVIR\RITONAVIR
     Indication: COVID-19
     Dosage: 150 MG + 100 MG, FILM-COATED TABLET, 1 TABLET MORNING AND EVENING
     Dates: start: 20231127, end: 20231201
  6. CHLORPROMAZINE [Suspect]
     Active Substance: CHLORPROMAZINE
     Indication: Nausea
     Dosage: 25 MG/5 ML, SOLUTION FOR INJECTION IN AMPOULE
     Dates: start: 20231127, end: 20231130

REACTIONS (1)
  - Mixed liver injury [Recovering/Resolving]

NARRATIVE: CASE EVENT DATE: 20231201
